FAERS Safety Report 7301457-9 (Version None)
Quarter: 2011Q1

REPORT INFORMATION
  Report Type: 
  Country: None (occurrence: None)
  Receive Date: 20110113
  Receipt Date: 20101119
  Transmission Date: 20110831
  Serious: No
  Sender: FDA-Public Use
  Company Number: US-001404

PATIENT

DRUGS (3)
  1. KUVAN (SAPROPTERID DIHYDROCHLORIDE) 100 MG [Suspect]
     Indication: PHENYLKETONURIA
     Dosage: 20 MG/KG QD TRANSPLACENTAL
     Route: 064
     Dates: start: 20101001
  2. HYDROCHLOROTHIAZIDE [Concomitant]
  3. PROCARDIA [Concomitant]

REACTIONS (1)
  - DRUG EXPOSURE DURING PREGNANCY [None]
